FAERS Safety Report 18993550 (Version 4)
Quarter: 2021Q4

REPORT INFORMATION
  Report Type: Report from Study
  Country: US (occurrence: US)
  Receive Date: 20210310
  Receipt Date: 20211007
  Transmission Date: 20220303
  Serious: Yes (Other)
  Sender: FDA-Public Use
  Company Number: US-MALLINCKRODT PHARMACEUTICALS-T202100438

PATIENT
  Age: 71 Year
  Sex: Female

DRUGS (3)
  1. CORTICOTROPIN [Suspect]
     Active Substance: CORTICOTROPIN
     Indication: Rheumatoid arthritis
     Dosage: 40 UNITS TWICE A WEEK
     Route: 058
     Dates: start: 202011, end: 202012
  2. CORTICOTROPIN [Suspect]
     Active Substance: CORTICOTROPIN
     Indication: Polymyositis
     Dosage: UNK
     Route: 065
     Dates: start: 20210217
  3. COVID-19 VACCINE [Concomitant]
     Indication: Immunisation
     Dosage: UNKNOWN
     Route: 065
     Dates: start: 20210210

REACTIONS (7)
  - Diabetes mellitus inadequate control [Not Recovered/Not Resolved]
  - Dizziness [Not Recovered/Not Resolved]
  - Upper limb fracture [Unknown]
  - Eye disorder [Not Recovered/Not Resolved]
  - Muscle spasms [Unknown]
  - Insomnia [Unknown]
  - Blood pressure inadequately controlled [Unknown]

NARRATIVE: CASE EVENT DATE: 20200101
